FAERS Safety Report 13245615 (Version 2)
Quarter: 2017Q2

REPORT INFORMATION
  Report Type: Report from Study
  Country: US (occurrence: US)
  Receive Date: 20170217
  Receipt Date: 20170504
  Transmission Date: 20170830
  Serious: Yes (Hospitalization, Other)
  Sender: FDA-Public Use
  Company Number: US-KADMON PHARMACEUTICALS, LLC-KAD201702-000390

PATIENT
  Age: 58 Year
  Sex: Female

DRUGS (21)
  1. SIMVASTATIN. [Concomitant]
     Active Substance: SIMVASTATIN
  2. ONGLYZA [Concomitant]
     Active Substance: SAXAGLIPTIN HYDROCHLORIDE
  3. FOLIC ACID. [Concomitant]
     Active Substance: FOLIC ACID
  4. AMOXICILLIN. [Concomitant]
     Active Substance: AMOXICILLIN
  5. ALPRAZOLAM. [Concomitant]
     Active Substance: ALPRAZOLAM
  6. RIBAVIRIN. [Suspect]
     Active Substance: RIBAVIRIN
     Indication: HEPATITIS C
     Dates: start: 20161118, end: 20170123
  7. ALBUTEROL. [Concomitant]
     Active Substance: ALBUTEROL
  8. PANTOPRAZOLE [Concomitant]
     Active Substance: PANTOPRAZOLE
  9. VITAMIN B12 [Concomitant]
     Active Substance: CYANOCOBALAMIN
  10. BETADINE [Concomitant]
     Active Substance: POVIDONE-IODINE
  11. FLUTICASONE. [Concomitant]
     Active Substance: FLUTICASONE
  12. MIRTAZAPINE. [Concomitant]
     Active Substance: MIRTAZAPINE
  13. VENLAFAXINE [Concomitant]
     Active Substance: VENLAFAXINE HYDROCHLORIDE
  14. SODIUM BICARBONATE. [Concomitant]
     Active Substance: SODIUM BICARBONATE
  15. CYCLOBENZAPRINE. [Concomitant]
     Active Substance: CYCLOBENZAPRINE
  16. DIAZEPAM. [Concomitant]
     Active Substance: DIAZEPAM
  17. LACTULOSE. [Concomitant]
     Active Substance: LACTULOSE
  18. SUCRALFATE. [Concomitant]
     Active Substance: SUCRALFATE
  19. VIEKIRA PAK [Suspect]
     Active Substance: DASABUVIR\OMBITASVIR\PARITAPREVIR\RITONAVIR
     Indication: HEPATITIS C
     Route: 048
     Dates: start: 20161118, end: 20170124
  20. RANITIDINE. [Concomitant]
     Active Substance: RANITIDINE
  21. ADVAIR (SERETIDE) [Concomitant]

REACTIONS (17)
  - Hypertension [Recovered/Resolved with Sequelae]
  - Pain [Recovered/Resolved with Sequelae]
  - Nausea [Recovered/Resolved with Sequelae]
  - Blood sodium decreased [Recovered/Resolved with Sequelae]
  - Pain [Recovered/Resolved with Sequelae]
  - Headache [Recovering/Resolving]
  - Confusional state [Recovered/Resolved with Sequelae]
  - Tinnitus [Not Recovered/Not Resolved]
  - Blood glucose increased [Recovered/Resolved]
  - Oral candidiasis [Recovered/Resolved with Sequelae]
  - Fall [Recovered/Resolved]
  - Oedema [Not Recovered/Not Resolved]
  - Decreased appetite [Not Recovered/Not Resolved]
  - Contusion [Recovered/Resolved]
  - Confusional state [Recovered/Resolved with Sequelae]
  - Pain in extremity [Not Recovered/Not Resolved]
  - Constipation [Recovered/Resolved with Sequelae]

NARRATIVE: CASE EVENT DATE: 201612
